FAERS Safety Report 26171215 (Version 1)
Quarter: 2025Q4

REPORT INFORMATION
  Report Type: Spontaneous
  Country: US (occurrence: None)
  Receive Date: 20251217
  Receipt Date: 20251217
  Transmission Date: 20260118
  Serious: Yes (Life-Threatening, Other)
  Sender: FDA-CTU
  Company Number: None

PATIENT
  Age: 56 Year
  Sex: Female
  Weight: 92.25 kg

DRUGS (1)
  1. ENBREL [Suspect]
     Active Substance: ETANERCEPT
     Indication: Erythema elevatum diutinum
     Dosage: OTHER STRENGTH : 50MG/ML PEN INJECT;?OTHER FREQUENCY : WEEKLY;
     Route: 058

REACTIONS (1)
  - Pancytopenia [None]

NARRATIVE: CASE EVENT DATE: 20251113
